FAERS Safety Report 17363277 (Version 2)
Quarter: 2020Q1

REPORT INFORMATION
  Report Type: Report from Study
  Country: US (occurrence: US)
  Receive Date: 20200203
  Receipt Date: 20200214
  Transmission Date: 20200409
  Serious: Yes (Hospitalization, Other)
  Sender: FDA-Public Use
  Company Number: US-GILEAD-2020-0449478

PATIENT
  Age: 17 Year
  Sex: Female

DRUGS (1)
  1. AZTREONAM LYSINE [Suspect]
     Active Substance: AZTREONAM LYSINE
     Indication: CYSTIC FIBROSIS
     Dosage: TID FOR 28 DAYS ON/OFF
     Route: 055
     Dates: start: 20171003

REACTIONS (2)
  - Cystic fibrosis [Not Recovered/Not Resolved]
  - Condition aggravated [Unknown]
